FAERS Safety Report 5224294-8 (Version None)
Quarter: 2007Q1

REPORT INFORMATION
  Report Type: 
  Country: None (occurrence: None)
  Receive Date: 20070130
  Receipt Date: 20070124
  Transmission Date: 20070707
  Serious: Yes (Hospitalization)
  Sender: FDA-Public Use
  Company Number: JP-ELI_LILLY_AND_COMPANY-JP200612002572

PATIENT
  Age: 79 Year
  Sex: Female

DRUGS (5)
  1. HUMULIN 70/30 [Suspect]
     Indication: DIABETES MELLITUS
     Dosage: UNK, UNK
     Dates: end: 20061207
  2. HUMULIN 70/30 [Suspect]
     Dosage: UNK, UNK
     Dates: start: 20061207
  3. MEXITIL [Concomitant]
  4. MAGLAX /JPN/ [Concomitant]
     Indication: INTESTINAL OBSTRUCTION
  5. CYANOCOBALAMIN [Concomitant]

REACTIONS (3)
  - BLOOD GLUCOSE INCREASED [None]
  - HYPERSENSITIVITY [None]
  - LOSS OF CONSCIOUSNESS [None]
